FAERS Safety Report 6811335-7 (Version None)
Quarter: 2010Q2

REPORT INFORMATION
  Report Type: 
  Country: None (occurrence: None)
  Receive Date: 20100629
  Receipt Date: 20100629
  Transmission Date: 20101027
  Serious: No
  Sender: FDA-Public Use
  Company Number: None

PATIENT
  Sex: Female
  Weight: 49.8957 kg

DRUGS (1)
  1. EXELON [Suspect]
     Indication: DEMENTIA ALZHEIMER'S TYPE
     Dosage: 1 A DAY
     Dates: start: 20070101, end: 20100530

REACTIONS (4)
  - HYPOPHAGIA [None]
  - MALAISE [None]
  - SYNCOPE [None]
  - VOMITING [None]
